FAERS Safety Report 18542517 (Version 1)
Quarter: 2020Q4

REPORT INFORMATION
  Report Type: Other
  Country: GB (occurrence: GB)
  Receive Date: 20201125
  Receipt Date: 20201125
  Transmission Date: 20210114
  Serious: Yes (Death)
  Sender: FDA-Public Use
  Company Number: GB-AJANTA PHARMA USA INC.-2096283

PATIENT
  Age: 19 Year
  Sex: Female

DRUGS (1)
  1. DOXYCYCLINE HYCLATE (ANDA 211012) [Suspect]
     Active Substance: DOXYCYCLINE HYCLATE

REACTIONS (2)
  - Psychotic disorder [Fatal]
  - Injury [Fatal]

NARRATIVE: CASE EVENT DATE: 201907
